FAERS Safety Report 8883114 (Version 6)
Quarter: 2013Q3

REPORT INFORMATION
  Report Type: Spontaneous
  Country: US (occurrence: US)
  Receive Date: 20121103
  Receipt Date: 20130806
  Transmission Date: 20140515
  Serious: Yes (Hospitalization, Other)
  Sender: FDA-Public Use
  Company Number: US-ASTRAZENECA-2012SE80421

PATIENT
  Age: 68 Year
  Sex: Female

DRUGS (3)
  1. NEXIUM [Suspect]
     Route: 048
  2. NEXIUM [Suspect]
     Route: 048
  3. CRESTOR [Suspect]
     Indication: BLOOD CHOLESTEROL ABNORMAL
     Dosage: IN THE MORNING AND STARTED TAKING IT LATER IN THE DAY
     Route: 048

REACTIONS (10)
  - Transient ischaemic attack [Unknown]
  - Hypertension [Unknown]
  - Loss of consciousness [Unknown]
  - Amnesia [Unknown]
  - Cardiac disorder [Unknown]
  - Road traffic accident [Unknown]
  - Blood cholesterol increased [Unknown]
  - Coronary artery disease [Unknown]
  - Drug dose omission [None]
  - Drug effect incomplete [Unknown]
